FAERS Safety Report 8529659 (Version 4)
Quarter: 2012Q4

REPORT INFORMATION
  Report Type: Report from Study
  Country: DE (occurrence: DE)
  Receive Date: 20120425
  Receipt Date: 20121126
  Transmission Date: 20130627
  Serious: Yes (Other)
  Sender: FDA-Public Use
  Company Number: DE-ROCHE-1061043

PATIENT
  Age: 62 Year
  Sex: Female
  Weight: 108 kg

DRUGS (11)
  1. FALITHROM [Concomitant]
     Indication: THROMBOSIS PROPHYLAXIS
     Route: 048
     Dates: start: 201106
  2. SIMVASTATIN [Concomitant]
     Indication: HYPERCHOLESTEROLAEMIA
     Route: 048
  3. PANTOPRAZOL [Concomitant]
     Indication: PROPHYLAXIS
     Route: 048
     Dates: start: 20090618
  4. CORTICOSTEROID NOS [Concomitant]
     Route: 048
  5. FOLINIC ACID [Concomitant]
     Route: 048
  6. PREDNISOLON [Concomitant]
     Route: 048
     Dates: start: 20090713, end: 20120730
  7. TRAMADOL [Concomitant]
     Route: 048
  8. PARACETAMOL [Concomitant]
     Dosage: As required
     Route: 048
  9. TOCILIZUMAB [Suspect]
     Indication: RHEUMATOID ARTHRITIS
     Dosage: On 21 Mar 2012, 04 May 2012, 04 Jun 2012, 02 Jul 2012, The patient received infusion of Tocilizumab
     Route: 042
     Dates: start: 20111130
  10. METHOTREXAT [Concomitant]
     Indication: RHEUMATOID ARTHRITIS
     Route: 048
     Dates: start: 20110110
  11. BISOPROLOL [Concomitant]
     Indication: HYPERTENSION
     Route: 048

REACTIONS (3)
  - Urinary tract infection [Recovered/Resolved]
  - Haematuria [Unknown]
  - Urinary tract infection [Recovered/Resolved]
